FAERS Safety Report 25622906 (Version 1)
Quarter: 2025Q3

REPORT INFORMATION
  Report Type: Spontaneous
  Country: US (occurrence: US)
  Receive Date: 20250730
  Receipt Date: 20250730
  Transmission Date: 20251020
  Serious: No
  Sender: GALPHARM INTERNATIONAL
  Company Number: US-PERRIGO-24US009317

PATIENT
  Age: 62 Year
  Sex: Female
  Weight: 76.19 kg

DRUGS (3)
  1. LORATADINE [Suspect]
     Active Substance: LORATADINE
     Indication: Perennial allergy
     Route: 048
     Dates: end: 202409
  2. LORATADINE [Suspect]
     Active Substance: LORATADINE
     Route: 048
     Dates: start: 20240930, end: 20240930
  3. SIMVASTATIN [Concomitant]
     Active Substance: SIMVASTATIN
     Indication: Blood cholesterol increased
     Route: 065
     Dates: start: 2009

REACTIONS (2)
  - Dry mouth [Recovering/Resolving]
  - Tongue blistering [Recovering/Resolving]

NARRATIVE: CASE EVENT DATE: 20240930
